FAERS Safety Report 21697672 (Version 2)
Quarter: 2022Q4

REPORT INFORMATION
  Report Type: Spontaneous
  Country: DE (occurrence: DE)
  Receive Date: 20221208
  Receipt Date: 20221230
  Transmission Date: 20230113
  Serious: Yes (Hospitalization, Other)
  Sender: FDA-Public Use
  Company Number: DE-BIOGEN-2022BI01173175

PATIENT
  Age: 62 Year
  Sex: Male

DRUGS (6)
  1. TECFIDERA [Suspect]
     Active Substance: DIMETHYL FUMARATE
     Indication: Relapsing-remitting multiple sclerosis
     Route: 050
     Dates: start: 201804, end: 20221202
  2. TECFIDERA [Suspect]
     Active Substance: DIMETHYL FUMARATE
     Dosage: STARTING DOSE
     Route: 050
     Dates: start: 20180404
  3. TECFIDERA [Suspect]
     Active Substance: DIMETHYL FUMARATE
     Dosage: MAINTENANCE DOSE
     Route: 050
     Dates: start: 20180504, end: 20221130
  4. ASPIRIN [Concomitant]
     Active Substance: ASPIRIN
     Indication: Brain stem infarction
     Route: 050
     Dates: start: 2015
  5. lisinopril 20 [Concomitant]
     Indication: Hypertension
     Route: 050
     Dates: start: 2015
  6. Corifeo 20 [Concomitant]
     Indication: Hypertension
     Route: 050
     Dates: start: 2015

REACTIONS (5)
  - Tumour inflammation [Recovered/Resolved]
  - Colonic abscess [Recovered/Resolved]
  - Colitis [Recovered/Resolved]
  - Crohn^s disease [Unknown]
  - Inflammatory bowel disease [Unknown]

NARRATIVE: CASE EVENT DATE: 20220117
